FAERS Safety Report 5803061-8 (Version None)
Quarter: 2008Q3

REPORT INFORMATION
  Report Type: 
  Country: None (occurrence: None)
  Receive Date: 20080703
  Receipt Date: 20080620
  Transmission Date: 20090109
  Serious: Yes (Other)
  Sender: FDA-Public Use
  Company Number: 100#03#2008-03255

PATIENT
  Age: 23 Year
  Sex: Male

DRUGS (2)
  1. ERYTHROMYCIN [Suspect]
     Indication: ACNE
     Dosage: 250 MG TWICE DAILY ORAL
     Route: 048
     Dates: start: 20080420, end: 20080527
  2. ASACOL [Concomitant]

REACTIONS (3)
  - COLITIS [None]
  - CONDITION AGGRAVATED [None]
  - RECTAL HAEMORRHAGE [None]
